FAERS Safety Report 11671948 (Version 1)
Quarter: 2015Q4

REPORT INFORMATION
  Report Type: Spontaneous
  Country: US (occurrence: US)
  Receive Date: 20151028
  Receipt Date: 20151028
  Transmission Date: 20160304
  Serious: No
  Sender: FDA-Public Use
  Company Number: PHEH2015US002322

PATIENT
  Age: 8 Year
  Sex: Male
  Weight: 36 kg

DRUGS (4)
  1. QUILLIVANT XR [Suspect]
     Active Substance: METHYLPHENIDATE HYDROCHLORIDE
     Indication: PRODUCT USED FOR UNKNOWN INDICATION
     Dosage: 5 ML, ONCE DAILY
     Route: 048
  2. CROMOLYN [Concomitant]
     Active Substance: CROMOLYN
     Indication: HYPERSENSITIVITY
     Dosage: UNK, IN SRPING AND SUMMER
     Route: 065
  3. RITALIN [Suspect]
     Active Substance: METHYLPHENIDATE HYDROCHLORIDE
     Indication: PRODUCT USED FOR UNKNOWN INDICATION
     Dosage: UNK
     Route: 065
  4. FLUTICASONE [Concomitant]
     Active Substance: FLUTICASONE\FLUTICASONE PROPIONATE
     Indication: HYPERSENSITIVITY
     Dosage: UNK, TWICE DAILY ONLY IN SUMMER AND SPRINGS
     Route: 065

REACTIONS (3)
  - Weight increased [Not Recovered/Not Resolved]
  - Renal disorder [Unknown]
  - Weight decreased [Unknown]
